FAERS Safety Report 11263678 (Version 3)
Quarter: 2016Q3

REPORT INFORMATION
  Report Type: Report from Study
  Country: BR (occurrence: BR)
  Receive Date: 20150713
  Receipt Date: 20160707
  Transmission Date: 20161109
  Serious: Yes (Hospitalization, Other)
  Sender: FDA-Public Use
  Company Number: BR-ROCHE-1606997

PATIENT
  Age: 50 Year
  Sex: Male
  Weight: 80 kg

DRUGS (10)
  1. TYLENOL [Concomitant]
     Active Substance: ACETAMINOPHEN
     Dosage: DAILY
     Route: 065
  2. CLOPIDOGREL BISULFATE. [Concomitant]
     Active Substance: CLOPIDOGREL BISULFATE
     Dosage: DAILY
     Route: 065
  3. PREDNISONE. [Concomitant]
     Active Substance: PREDNISONE
     Dosage: DAILY
     Route: 065
  4. FOLIC ACID. [Concomitant]
     Active Substance: FOLIC ACID
     Dosage: DAILY
     Route: 065
  5. ATENOLOL. [Concomitant]
     Active Substance: ATENOLOL
     Route: 065
  6. ACTEMRA [Suspect]
     Active Substance: TOCILIZUMAB
     Indication: RHEUMATOID ARTHRITIS
     Route: 042
     Dates: start: 20150425
  7. DOLAMIN (BRAZIL) [Concomitant]
     Dosage: DAILY
     Route: 065
  8. SILICEA [Concomitant]
     Active Substance: SILICON DIOXIDE
     Indication: GASTROINTESTINAL DISORDER
  9. PANTOPRAZOLE [Concomitant]
     Active Substance: PANTOPRAZOLE SODIUM
     Dosage: DAILY
     Route: 065
  10. METHOTREXATE. [Concomitant]
     Active Substance: METHOTREXATE
     Dosage: DAILY?1 TABLET, 3 TIMES A DAY ON TWO DAYS OF A WEEK
     Route: 065

REACTIONS (9)
  - Anxiety [Unknown]
  - Stress [Unknown]
  - Gastrointestinal disorder [Recovered/Resolved]
  - Cerebrovascular accident [Unknown]
  - Depression [Unknown]
  - Diarrhoea [Recovered/Resolved]
  - Weight decreased [Recovered/Resolved]
  - Gastrointestinal toxicity [Recovered/Resolved]
  - Rheumatoid arthritis [Unknown]

NARRATIVE: CASE EVENT DATE: 201507
